FAERS Safety Report 7775039 (Version 3)
Quarter: 2013Q2

REPORT INFORMATION
  Report Type: Spontaneous
  Country: GB (occurrence: GB)
  Receive Date: 20110126
  Receipt Date: 20130430
  Transmission Date: 20140414
  Serious: Yes (Other)
  Sender: FDA-Public Use
  Company Number: GB-WATSON-2011-00885

PATIENT
  Age: 22 Year
  Sex: Female

DRUGS (1)
  1. SALBUTAMOL (UNKNOWN) [Suspect]
     Indication: INTENTIONAL SELF-INJURY
     Dosage: 40 PUFFS, SINGLE ADMINISTRATION
     Route: 003

REACTIONS (4)
  - Application site burn [Recovered/Resolved]
  - Intentional self-injury [Recovered/Resolved]
  - Device misuse [Recovered/Resolved]
  - Incorrect route of drug administration [Recovered/Resolved]
